FAERS Safety Report 21070947 (Version 1)
Quarter: 2022Q3

REPORT INFORMATION
  Report Type: Spontaneous
  Country: US (occurrence: None)
  Receive Date: 20220712
  Receipt Date: 20220712
  Transmission Date: 20221026
  Serious: Yes (Other)
  Sender: FDA-Public Use
  Company Number: None

PATIENT
  Age: 30 Year
  Sex: Male
  Weight: 90 kg

DRUGS (7)
  1. KIRKLAND SIGNATURE ALLER TEC ALLERGY [Suspect]
     Active Substance: CETIRIZINE HYDROCHLORIDE
     Indication: Rhinitis allergic
     Dosage: OTHER QUANTITY : 1 TABLET(S);?
     Route: 048
     Dates: start: 20210104, end: 20211124
  2. KIRKLAND SIGNATURE ALLER TEC ALLERGY [Suspect]
     Active Substance: CETIRIZINE HYDROCHLORIDE
     Indication: Dermatitis allergic
  3. ADDERALL [Concomitant]
     Active Substance: AMPHETAMINE ASPARTATE\AMPHETAMINE SULFATE\DEXTROAMPHETAMINE SACCHARATE\DEXTROAMPHETAMINE SULFATE
  4. CLONAZEPAM [Concomitant]
     Active Substance: CLONAZEPAM
  5. OMEPRAZOLE [Concomitant]
     Active Substance: OMEPRAZOLE
  6. BENADRYL [Concomitant]
     Active Substance: DIPHENHYDRAMINE HYDROCHLORIDE
  7. allergy immunization shots [Concomitant]

REACTIONS (1)
  - Parasomnia [None]

NARRATIVE: CASE EVENT DATE: 20210427
